FAERS Safety Report 5095465-9 (Version None)
Quarter: 2006Q3

REPORT INFORMATION
  Report Type: 
  Country: None (occurrence: None)
  Receive Date: 20060820
  Receipt Date: 20060814
  Transmission Date: 20061208
  Serious: No
  Sender: FDA-Public Use
  Company Number: TPA2006A01335

PATIENT
  Age: 63 Year
  Sex: Male
  Weight: 95.2554 kg

DRUGS (6)
  1. ROZEREM [Suspect]
     Indication: INSOMNIA
     Dosage: 4 MG, QHS, PER ORAL
     Route: 048
     Dates: start: 20060812
  2. XANAX [Concomitant]
  3. DIOVAN [Concomitant]
  4. HYDROCHLOROTHIAZIDE [Concomitant]
  5. LIPITOR [Concomitant]
  6. ENTOCORT EC [Concomitant]

REACTIONS (6)
  - ANXIETY [None]
  - CONDITION AGGRAVATED [None]
  - CONFUSIONAL STATE [None]
  - FATIGUE [None]
  - FEELING ABNORMAL [None]
  - INSOMNIA [None]
